FAERS Safety Report 7469599-5 (Version None)
Quarter: 2011Q2

REPORT INFORMATION
  Report Type: 
  Country: None (occurrence: None)
  Receive Date: 20110510
  Receipt Date: 20110426
  Transmission Date: 20111010
  Serious: Yes (Death, Other)
  Sender: FDA-Public Use
  Company Number: US-BAYER-201012134NA

PATIENT
  Age: 65 Year
  Sex: Female

DRUGS (12)
  1. TEGRETOL [Concomitant]
     Route: 048
  2. TRICOR [Concomitant]
     Route: 048
  3. ZYRTEC [Concomitant]
     Route: 048
  4. TRASYLOL [Suspect]
     Indication: PRODUCT USED FOR UNKNOWN INDICATION
     Route: 042
     Dates: start: 20020729
  5. DEMADEX [Concomitant]
     Route: 048
  6. VERAPAMIL [Concomitant]
     Route: 048
  7. VANTIN [Concomitant]
     Route: 048
  8. ATROVENT [Concomitant]
  9. ZANTAC [Concomitant]
     Route: 048
  10. LESCOL [Concomitant]
     Route: 048
  11. ALLEGRA [Concomitant]
     Route: 048
  12. PROVENTIL [Concomitant]

REACTIONS (13)
  - RENAL IMPAIRMENT [None]
  - ANXIETY [None]
  - FEAR [None]
  - RENAL INJURY [None]
  - DEATH [None]
  - STRESS [None]
  - UNEVALUABLE EVENT [None]
  - PAIN [None]
  - CEREBROVASCULAR ACCIDENT [None]
  - EMOTIONAL DISTRESS [None]
  - INJURY [None]
  - MULTI-ORGAN FAILURE [None]
  - RENAL FAILURE [None]
